FAERS Safety Report 10951741 (Version 3)
Quarter: 2017Q2

REPORT INFORMATION
  Report Type: Report from Study
  Country: US (occurrence: US)
  Receive Date: 20150325
  Receipt Date: 20170606
  Transmission Date: 20170829
  Serious: Yes (Other)
  Sender: FDA-Public Use
  Company Number: US-UCBSA-2015008947

PATIENT
  Sex: Male

DRUGS (3)
  1. LACOSAMIDE. [Suspect]
     Active Substance: LACOSAMIDE
     Indication: SEIZURE
     Dosage: (STRENGTH: 100MG), 100 MG, 2X/DAY (BID) (STARTED LONG TIME AGO)
     Route: 048
  2. KEPPRA [Suspect]
     Active Substance: LEVETIRACETAM
     Indication: SEIZURE
     Dosage: (STRENGTH:1000 MG), 1500 MG, 2X/DAY (BID) (STARTED 7 YEARS AGO)
     Route: 048
  3. LEVETIRACETAM. [Suspect]
     Active Substance: LEVETIRACETAM
     Indication: EPILEPSY
     Dosage: UNK
     Dates: start: 2012

REACTIONS (6)
  - Seizure [Unknown]
  - Joint dislocation [Unknown]
  - Mobility decreased [Unknown]
  - Arthritis [Unknown]
  - Impaired work ability [Unknown]
  - Fall [Recovered/Resolved]

NARRATIVE: CASE EVENT DATE: 2012
